FAERS Safety Report 13109354 (Version 1)
Quarter: 2017Q1

REPORT INFORMATION
  Report Type: Spontaneous
  Country: US (occurrence: US)
  Receive Date: 20170112
  Receipt Date: 20170112
  Transmission Date: 20170428
  Serious: Yes (Hospitalization, Other)
  Sender: FDA-Public Use
  Company Number: US-BRISTOL-MYERS SQUIBB COMPANY-BMS-2017-000600

PATIENT
  Sex: Female

DRUGS (1)
  1. OPDIVO [Suspect]
     Active Substance: NIVOLUMAB
     Indication: LUNG NEOPLASM MALIGNANT
     Route: 065

REACTIONS (10)
  - Cardiac arrest [Recovered/Resolved]
  - Fall [Recovered/Resolved]
  - Syncope [Unknown]
  - Pneumonia [Recovered/Resolved]
  - Rib fracture [Unknown]
  - General physical health deterioration [Unknown]
  - Palpitations [Unknown]
  - Ventricular extrasystoles [Unknown]
  - Noninfective encephalitis [Unknown]
  - Abdominal pain [Unknown]
